FAERS Safety Report 23153249 (Version 1)
Quarter: 2023Q4

REPORT INFORMATION
  Report Type: Spontaneous
  Country: US (occurrence: None)
  Receive Date: 20231106
  Receipt Date: 20231106
  Transmission Date: 20240110
  Serious: Yes (Other)
  Sender: FDA-Public Use
  Company Number: None

PATIENT
  Age: 27 Year
  Sex: Female
  Weight: 124.5 kg

DRUGS (2)
  1. FOSAPREPITANT [Suspect]
     Active Substance: FOSAPREPITANT
     Indication: Prophylaxis of nausea and vomiting
     Dosage: 150 MG ONCE INTRAVENOUS
     Route: 042
     Dates: start: 20231017, end: 20231017
  2. ENOXAPARIN [Concomitant]
     Active Substance: ENOXAPARIN
     Dates: start: 20231017, end: 20231017

REACTIONS (2)
  - Chest discomfort [None]
  - Cough [None]

NARRATIVE: CASE EVENT DATE: 20231017
